FAERS Safety Report 16687788 (Version 3)
Quarter: 2019Q4

REPORT INFORMATION
  Report Type: Spontaneous
  Country: US (occurrence: US)
  Receive Date: 20190809
  Receipt Date: 20191227
  Transmission Date: 20200122
  Serious: No
  Sender: FDA-Public Use
  Company Number: US-PFIZER INC-2019336824

PATIENT
  Age: 70 Year
  Sex: Female
  Weight: 73 kg

DRUGS (10)
  1. MELATONIN [Concomitant]
     Active Substance: MELATONIN
     Dosage: UNK
  2. VALSARTAN/HYDROCHLOROTHIAZIDE [Concomitant]
     Active Substance: HYDROCHLOROTHIAZIDE\VALSARTAN
     Dosage: UNK (80-12.5)
  3. LACTAID FAST ACT [Concomitant]
     Active Substance: LACTASE
     Dosage: UNK
  4. CAL MAG [Concomitant]
     Dosage: UNK
  5. FISH OIL [Concomitant]
     Active Substance: FISH OIL
     Dosage: UNK
  6. IBRANCE [Suspect]
     Active Substance: PALBOCICLIB
     Indication: BREAST CANCER METASTATIC
     Dosage: 125 MG, CYCLIC (TAKE ONE FOR 21 DAYS BY MOUTH AND THEN OFF FOR 7)
     Route: 048
     Dates: start: 20190429
  7. TURMERIC CURCUMIN [Concomitant]
     Active Substance: HERBALS\TURMERIC
     Dosage: UNK (TURMERIC IN AM AND AFTER LUNCH)
  8. LORAZEPAM. [Concomitant]
     Active Substance: LORAZEPAM
     Dosage: 1 MG, UNK
  9. ANASTROZOLE. [Concomitant]
     Active Substance: ANASTROZOLE
     Indication: BREAST CANCER STAGE IV
     Dosage: 1 MG, 1X/DAY
     Dates: start: 201904
  10. ROSUVASTATIN. [Concomitant]
     Active Substance: ROSUVASTATIN
     Dosage: 10 MG, UNK

REACTIONS (8)
  - Pain of skin [Unknown]
  - Muscle spasms [Recovered/Resolved]
  - Dehydration [Unknown]
  - Alopecia [Not Recovered/Not Resolved]
  - Skin exfoliation [Not Recovered/Not Resolved]
  - Pruritus [Unknown]
  - Diarrhoea [Recovered/Resolved]
  - Skin burning sensation [Unknown]

NARRATIVE: CASE EVENT DATE: 2019
